FAERS Safety Report 4942212-4 (Version None)
Quarter: 2006Q1

REPORT INFORMATION
  Report Type: 
  Country: None (occurrence: None)
  Receive Date: 20060313
  Receipt Date: 20050913
  Transmission Date: 20060701
  Serious: No
  Sender: FDA-Public Use
  Company Number: US-GLAXOSMITHKLINE-A0574016A

PATIENT
  Age: 46 Year
  Sex: Female

DRUGS (1)
  1. NICORETTE (ORANGE) [Suspect]
     Dates: start: 20050910, end: 20050910

REACTIONS (2)
  - MALAISE [None]
  - VOMITING [None]
